FAERS Safety Report 11512450 (Version 2)
Quarter: 2015Q4

REPORT INFORMATION
  Report Type: Report from Study
  Country: BR (occurrence: BR)
  Receive Date: 20150916
  Receipt Date: 20151007
  Transmission Date: 20160304
  Serious: Yes (Life-Threatening, Hospitalization, Other)
  Sender: FDA-Public Use
  Company Number: PHHY2015BR111261

PATIENT
  Age: 44 Year
  Sex: Male
  Weight: 74 kg

DRUGS (2)
  1. EXJADE [Suspect]
     Active Substance: DEFERASIROX
     Dosage: 2 DF (15 MG/KG), QD
     Route: 065
  2. EXJADE [Suspect]
     Active Substance: DEFERASIROX
     Indication: HEREDITARY STOMATOCYTOSIS
     Dosage: 7 DF (50 MG/KG), QD
     Route: 065

REACTIONS (12)
  - Blood glucose increased [Recovered/Resolved]
  - Cardiac failure [Recovering/Resolving]
  - Pollakiuria [Recovered/Resolved]
  - Diabetes mellitus [Recovered/Resolved]
  - Tooth loss [Not Recovered/Not Resolved]
  - Depression [Recovering/Resolving]
  - Anxiety [Recovering/Resolving]
  - Weight decreased [Recovered/Resolved]
  - Congestive cardiomyopathy [Recovering/Resolving]
  - Hypertension [Recovering/Resolving]
  - Syncope [Recovered/Resolved]
  - Poor quality sleep [Unknown]

NARRATIVE: CASE EVENT DATE: 201506
